FAERS Safety Report 24905593 (Version 1)
Quarter: 2025Q1

REPORT INFORMATION
  Report Type: Report from Study
  Country: US (occurrence: US)
  Receive Date: 20250130
  Receipt Date: 20250130
  Transmission Date: 20250409
  Serious: No
  Sender: HRA PHARMA
  Company Number: US-ORG100014127-2024000061

PATIENT
  Age: 63 Year
  Sex: Male

DRUGS (11)
  1. METOPIRONE [Suspect]
     Active Substance: METYRAPONE
     Indication: Adrenal gland cancer
     Dates: start: 20240122
  2. Aspirin 81mg EC Low dose tablets [Concomitant]
     Indication: Product used for unknown indication
  3. ATORVASTATIN CALCIUM [Concomitant]
     Active Substance: ATORVASTATIN CALCIUM
     Indication: Product used for unknown indication
  4. Calcium D 1200mg [Concomitant]
     Indication: Product used for unknown indication
  5. Lantus U-100 insulin 10 ml [Concomitant]
     Indication: Product used for unknown indication
  6. Levemir flexpen injection 3ml [Concomitant]
     Indication: Product used for unknown indication
  7. Levothyroxine 0.075mg tablets [Concomitant]
     Indication: Product used for unknown indication
  8. LOSARTAN [Concomitant]
     Active Substance: LOSARTAN
     Indication: Product used for unknown indication
  9. METFORMIN HYDROCHLORIDE [Concomitant]
     Active Substance: METFORMIN HYDROCHLORIDE
     Indication: Product used for unknown indication
  10. METOPROLOL SUCCINATE [Concomitant]
     Active Substance: METOPROLOL SUCCINATE
     Indication: Product used for unknown indication
  11. Vitamin C 500mg chewable  tablets [Concomitant]
     Indication: Product used for unknown indication

REACTIONS (1)
  - Off label use [Recovered/Resolved]
